FAERS Safety Report 9905896 (Version 2)
Quarter: 2014Q1

REPORT INFORMATION
  Report Type: Spontaneous
  Country: US (occurrence: US)
  Receive Date: 20140218
  Receipt Date: 20140218
  Transmission Date: 20141002
  Serious: Yes (Hospitalization)
  Sender: FDA-Public Use
  Company Number: US-B.I. PHARMACEUTICALS,INC./RIDGEFIELD-2013-BI-22817BP

PATIENT
  Sex: Male
  Weight: 73.48 kg

DRUGS (6)
  1. PRADAXA [Suspect]
     Indication: ATRIAL FIBRILLATION
     Dosage: 300 MG
     Dates: start: 20120509, end: 20120926
  2. CARBIDOPA LEVODOPA [Concomitant]
  3. CARBIDOPA LEVODOPA [Concomitant]
  4. AZILECT [Concomitant]
     Dosage: 1 MG
  5. ZOLOFT [Concomitant]
     Dosage: 25 MG
  6. ATENOLOL [Concomitant]
     Dosage: 12.5 MG

REACTIONS (2)
  - Gastrointestinal haemorrhage [Unknown]
  - Blood urine present [Unknown]
